FAERS Safety Report 4320777-3 (Version None)
Quarter: 2004Q1

REPORT INFORMATION
  Report Type: 
  Country: None (occurrence: None)
  Receive Date: 20040318
  Receipt Date: 20040303
  Transmission Date: 20041129
  Serious: Yes (Death)
  Sender: FDA-Public Use
  Company Number: 235683

PATIENT

DRUGS (1)
  1. PROTAPHANE INNOLET (INSULIN HUMAN) SUSPENSION FOR INJECTION, 100IU/ML [Suspect]

REACTIONS (1)
  - DEATH [None]
